FAERS Safety Report 9391159 (Version 2)
Quarter: 2013Q3

REPORT INFORMATION
  Report Type: Report from Study
  Country: BR (occurrence: BR)
  Receive Date: 20130709
  Receipt Date: 20130729
  Transmission Date: 20140515
  Serious: Yes (Other)
  Sender: FDA-Public Use
  Company Number: BR-US-EMD SERONO, INC.-7222530

PATIENT
  Sex: Female

DRUGS (6)
  1. REBIF [Suspect]
     Indication: MULTIPLE SCLEROSIS
     Dates: start: 20130215
  2. LEVOTHYROXINE SODIUM [Concomitant]
     Indication: HYPOTHYROIDISM
  3. LEVOTHYROXINE SODIUM [Concomitant]
     Indication: AUTOIMMUNE THYROIDITIS
  4. PROPRANOLOL HYDROCHLORIDE [Concomitant]
     Indication: MITRAL VALVE PROLAPSE
  5. CYMBALTA [Concomitant]
     Indication: PAIN
  6. TRAZODONE HYDROCHLORIDE [Concomitant]
     Indication: PAIN

REACTIONS (5)
  - Dengue fever [Not Recovered/Not Resolved]
  - Rhinitis [Not Recovered/Not Resolved]
  - Sneezing [Not Recovered/Not Resolved]
  - Oropharyngeal pain [Not Recovered/Not Resolved]
  - Head discomfort [Not Recovered/Not Resolved]
